FAERS Safety Report 17575486 (Version 1)
Quarter: 2020Q1

REPORT INFORMATION
  Report Type: Spontaneous
  Country: US (occurrence: US)
  Receive Date: 20200318
  Receipt Date: 20200318
  Transmission Date: 20200409
  Serious: Yes (Hospitalization)
  Sender: FDA-Public Use
  Company Number: None

PATIENT
  Age: 58 Year
  Sex: Male

DRUGS (2)
  1. HUMIRA [Suspect]
     Active Substance: ADALIMUMAB
     Indication: UVEITIS
     Route: 058
     Dates: start: 20200226
  2. ALLEGRA ALRG [Concomitant]

REACTIONS (2)
  - Hip arthroplasty [None]
  - Therapy cessation [None]

NARRATIVE: CASE EVENT DATE: 20200316
